FAERS Safety Report 25261159 (Version 3)
Quarter: 2025Q2

REPORT INFORMATION
  Report Type: Spontaneous
  Country: US (occurrence: US)
  Receive Date: 20250501
  Receipt Date: 20250509
  Transmission Date: 20250716
  Serious: No
  Sender: Haleon PLC
  Company Number: US-HALEON-2240133

PATIENT
  Sex: Female
  Weight: 52.163 kg

DRUGS (4)
  1. NICORETTE ORIGINAL [Suspect]
     Active Substance: NICOTINE
     Indication: Smoking cessation therapy
  2. NICORETTE MINT [Suspect]
     Active Substance: NICOTINE
     Indication: Smoking cessation therapy
  3. NICORETTE SPEARMINT BURST [Suspect]
     Active Substance: NICOTINE
     Indication: Smoking cessation therapy
  4. NICORETTE ORIGINAL [Suspect]
     Active Substance: NICOTINE
     Indication: Smoking cessation therapy

REACTIONS (3)
  - Product use issue [Unknown]
  - Product packaging issue [Unknown]
  - Poor quality product administered [Unknown]
